FAERS Safety Report 17877635 (Version 2)
Quarter: 2020Q3

REPORT INFORMATION
  Report Type: Spontaneous
  Country: US (occurrence: US)
  Receive Date: 20200609
  Receipt Date: 20200714
  Transmission Date: 20201103
  Serious: Yes (Other)
  Sender: FDA-Public Use
  Company Number: US-SUNOVION-2020SUN001708

PATIENT
  Age: 79 Year
  Sex: Male

DRUGS (2)
  1. LONHALA MAGNAIR [Suspect]
     Active Substance: GLYCOPYRROLATE
     Indication: CHRONIC OBSTRUCTIVE PULMONARY DISEASE
     Dosage: 25 ?G/1 ML, BID
     Route: 055
  2. OXYGEN. [Concomitant]
     Active Substance: OXYGEN
     Route: 055

REACTIONS (7)
  - Renal failure [Unknown]
  - Condition aggravated [Unknown]
  - Device power source issue [Unknown]
  - Device delivery system issue [Unknown]
  - Device issue [Unknown]
  - Immunodeficiency [Unknown]
  - Product dose omission issue [Unknown]
